FAERS Safety Report 24985917 (Version 1)
Quarter: 2025Q1

REPORT INFORMATION
  Report Type: Spontaneous
  Country: US (occurrence: None)
  Receive Date: 20250217
  Receipt Date: 20250217
  Transmission Date: 20250409
  Serious: Yes (Other)
  Sender: FDA-CTU
  Company Number: None

PATIENT
  Sex: Male

DRUGS (1)
  1. FUROSCIX [Suspect]
     Active Substance: FUROSEMIDE

REACTIONS (2)
  - Confusional state [None]
  - Cardiac failure [None]

NARRATIVE: CASE EVENT DATE: 20250206
